FAERS Safety Report 8060886-9 (Version None)
Quarter: 2012Q1

REPORT INFORMATION
  Report Type: 
  Country: None (occurrence: None)
  Receive Date: 20120120
  Receipt Date: 20110303
  Transmission Date: 20120608
  Serious: No
  Sender: FDA-Public Use
  Company Number: US-ALLERGAN-1103060US

PATIENT
  Age: 60 Year
  Sex: Female

DRUGS (2)
  1. LIPITOR [Concomitant]
     Indication: BLOOD CHOLESTEROL INCREASED
  2. RESTASIS [Suspect]
     Indication: DRY EYE
     Dosage: 2 GTT, BID
     Route: 047
     Dates: start: 20101001

REACTIONS (2)
  - EAR PAIN [None]
  - TINNITUS [None]
